FAERS Safety Report 16498186 (Version 2)
Quarter: 2019Q3

REPORT INFORMATION
  Report Type: Spontaneous
  Country: US (occurrence: US)
  Receive Date: 20190628
  Receipt Date: 20190729
  Transmission Date: 20191004
  Serious: No
  Sender: FDA-Public Use
  Company Number: US-JNJFOC-20190618782

PATIENT

DRUGS (2)
  1. DURAGESIC [Suspect]
     Active Substance: FENTANYL
     Indication: PAIN
     Dosage: 50.00 MCG/HR
     Route: 062
  2. DURAGESIC [Suspect]
     Active Substance: FENTANYL
     Route: 062

REACTIONS (1)
  - Drug ineffective [Unknown]
